FAERS Safety Report 9402625 (Version 1)
Quarter: 2013Q3

REPORT INFORMATION
  Report Type: Spontaneous
  Country: DE (occurrence: DE)
  Receive Date: 20130716
  Receipt Date: 20130716
  Transmission Date: 20140515
  Serious: Yes (Congenital Anomaly, Other)
  Sender: FDA-Public Use
  Company Number: GXKR2013DE002398

PATIENT
  Sex: 0

DRUGS (1)
  1. VALPROATE SODIUM [Suspect]
     Route: 064

REACTIONS (3)
  - Cerebral infarction [Unknown]
  - Atrial septal defect [Unknown]
  - Motor dysfunction [Not Recovered/Not Resolved]
